FAERS Safety Report 25766053 (Version 1)
Quarter: 2025Q3

REPORT INFORMATION
  Report Type: Spontaneous
  Country: US (occurrence: US)
  Receive Date: 20250905
  Receipt Date: 20250905
  Transmission Date: 20251021
  Serious: No
  Sender: DOMPE FARMACEUTICI
  Company Number: US-FARMAPROD-202407-2765

PATIENT
  Sex: Female

DRUGS (15)
  1. OXERVATE [Suspect]
     Active Substance: CENEGERMIN-BKBJ
     Indication: Neurotrophic keratopathy
     Route: 047
     Dates: start: 20240705
  2. LATANOPROST [Concomitant]
     Active Substance: LATANOPROST
  3. METFORMIN HYDROCHLORIDE [Concomitant]
     Active Substance: METFORMIN HYDROCHLORIDE
  4. GEMFIBROZIL [Concomitant]
     Active Substance: GEMFIBROZIL
  5. REPAGLINIDE [Concomitant]
     Active Substance: REPAGLINIDE
  6. ZYRTEC-D [Concomitant]
     Active Substance: CETIRIZINE HYDROCHLORIDE\PSEUDOEPHEDRINE HYDROCHLORIDE
  7. MONTELUKAST SODIUM [Concomitant]
     Active Substance: MONTELUKAST SODIUM
  8. CRESTOR [Concomitant]
     Active Substance: ROSUVASTATIN CALCIUM
  9. NEXIUM [Concomitant]
     Active Substance: ESOMEPRAZOLE MAGNESIUM
  10. LISINOPRIL [Concomitant]
     Active Substance: LISINOPRIL
  11. AMLODIPINE BESYLATE [Concomitant]
     Active Substance: AMLODIPINE BESYLATE
  12. ZOLOFT [Concomitant]
     Active Substance: SERTRALINE HYDROCHLORIDE
  13. JARDIANCE [Concomitant]
     Active Substance: EMPAGLIFLOZIN
  14. VALTREX [Concomitant]
     Active Substance: VALACYCLOVIR HYDROCHLORIDE
  15. GLIPIZIDE [Concomitant]
     Active Substance: GLIPIZIDE

REACTIONS (1)
  - Rhinorrhoea [Unknown]
